FAERS Safety Report 12103884 (Version 1)
Quarter: 2016Q1

REPORT INFORMATION
  Report Type: Spontaneous
  Country: US (occurrence: US)
  Receive Date: 20160223
  Receipt Date: 20160223
  Transmission Date: 20160526
  Serious: Yes (Other)
  Sender: FDA-Public Use
  Company Number: US-BEH-2016058859

PATIENT
  Sex: Female
  Weight: 51 kg

DRUGS (25)
  1. DIPHENHYDRAMINE. [Concomitant]
     Active Substance: DIPHENHYDRAMINE
  2. RESTASIS [Concomitant]
     Active Substance: CYCLOSPORINE
  3. VITAMIN D [Concomitant]
     Active Substance: CHOLECALCIFEROL
  4. FAGYL [Concomitant]
  5. ZOFRAN [Concomitant]
     Active Substance: ONDANSETRON HYDROCHLORIDE
  6. HYDROXYZINE [Concomitant]
     Active Substance: HYDROXYZINE\HYDROXYZINE HYDROCHLORIDE
  7. MORPHINE [Concomitant]
     Active Substance: MORPHINE
  8. HIZENTRA [Suspect]
     Active Substance: HUMAN IMMUNOGLOBULIN G
     Route: 058
     Dates: start: 20100910
  9. ADVAIR HFA [Concomitant]
     Active Substance: FLUTICASONE PROPIONATE\SALMETEROL XINAFOATE
  10. CEPHALEXIN. [Concomitant]
     Active Substance: CEPHALEXIN
  11. CLEOCIN [Concomitant]
     Active Substance: CLINDAMYCIN PHOSPHATE
  12. HIZENTRA [Suspect]
     Active Substance: HUMAN IMMUNOGLOBULIN G
     Indication: IMMUNODEFICIENCY COMMON VARIABLE
     Route: 058
     Dates: start: 20100910
  13. DIAZEPAM. [Concomitant]
     Active Substance: DIAZEPAM
  14. PHENERGAN [Concomitant]
     Active Substance: PROMETHAZINE HYDROCHLORIDE
  15. ZETIA [Concomitant]
     Active Substance: EZETIMIBE
  16. SODIUM CHLORIDE. [Concomitant]
     Active Substance: SODIUM CHLORIDE
  17. PREVACID [Concomitant]
     Active Substance: LANSOPRAZOLE
  18. ANZEMET [Concomitant]
     Active Substance: DOLASETRON MESYLATE
  19. LIDOCAINE/PRILOCAINE [Concomitant]
  20. EPIPEN [Concomitant]
     Active Substance: EPINEPHRINE
  21. DOMPERIDONE [Concomitant]
     Active Substance: DOMPERIDONE
  22. INDOCIN [Concomitant]
     Active Substance: INDOMETHACIN\INDOMETHACIN SODIUM
  23. MAXALT [Concomitant]
     Active Substance: RIZATRIPTAN BENZOATE
  24. ATENOLOL. [Concomitant]
     Active Substance: ATENOLOL
  25. LIDODER [Concomitant]

REACTIONS (4)
  - Bronchitis [Unknown]
  - Pneumothorax [Unknown]
  - Influenza [Unknown]
  - Respiratory tract infection [Unknown]
